FAERS Safety Report 4693362-1 (Version None)
Quarter: 2005Q2

REPORT INFORMATION
  Report Type: 
  Country: None (occurrence: None)
  Receive Date: 20050615
  Receipt Date: 20050601
  Transmission Date: 20051028
  Serious: Yes (Death)
  Sender: FDA-Public Use
  Company Number: USA050699452

PATIENT
  Age: 81 Year
  Sex: Female

DRUGS (1)
  1. HUMULIN N [Suspect]
     Indication: DIABETES MELLITUS
     Dates: start: 19850101

REACTIONS (4)
  - ASTHMA [None]
  - CONDITION AGGRAVATED [None]
  - NASOPHARYNGITIS [None]
  - PNEUMONIA [None]
